FAERS Safety Report 19228119 (Version 1)
Quarter: 2021Q2

REPORT INFORMATION
  Report Type: Spontaneous
  Country: US (occurrence: US)
  Receive Date: 20210506
  Receipt Date: 20210506
  Transmission Date: 20210717
  Serious: No
  Sender: FDA-Public Use
  Company Number: US-ROCHE-2733365

PATIENT
  Sex: Male

DRUGS (2)
  1. FAMOTIDINE. [Concomitant]
     Active Substance: FAMOTIDINE
  2. ESBRIET [Suspect]
     Active Substance: PIRFENIDONE
     Indication: PURPURA NON-THROMBOCYTOPENIC
     Route: 048
     Dates: start: 20201112

REACTIONS (3)
  - Intentional product use issue [Unknown]
  - Off label use [Unknown]
  - Dyspnoea [Recovering/Resolving]
